FAERS Safety Report 22095950 (Version 2)
Quarter: 2023Q2

REPORT INFORMATION
  Report Type: Spontaneous
  Country: US (occurrence: None)
  Receive Date: 20230315
  Receipt Date: 20230518
  Transmission Date: 20230722
  Serious: No
  Sender: FDA-Public Use
  Company Number: 2023A051986

PATIENT
  Sex: Male
  Weight: 54.4 kg

DRUGS (2)
  1. BREZTRI [Suspect]
     Active Substance: BUDESONIDE\FORMOTEROL\GLYCOPYRROLATE
     Indication: Emphysema
     Route: 055
     Dates: start: 202007
  2. SYMBICORT [Suspect]
     Active Substance: BUDESONIDE\FORMOTEROL FUMARATE DIHYDRATE
     Indication: Emphysema
     Dosage: 160NG/ML TWO TIMES A DAY
     Route: 055

REACTIONS (4)
  - Hypoacusis [Not Recovered/Not Resolved]
  - Candida infection [Recovered/Resolved]
  - Speech disorder [Unknown]
  - Device delivery system issue [Unknown]
